FAERS Safety Report 9962923 (Version 2)
Quarter: 2014Q1

REPORT INFORMATION
  Report Type: Report from Study
  Country: US (occurrence: US)
  Receive Date: 20140305
  Receipt Date: 20140305
  Transmission Date: 20141002
  Serious: No
  Sender: FDA-Public Use
  Company Number: US-ABBVIE-13P-163-1101369-00

PATIENT
  Age: 65 Year
  Sex: Female

DRUGS (14)
  1. HUMIRA [Suspect]
     Indication: CROHN^S DISEASE
     Dates: start: 20130125, end: 20130531
  2. PENTASA [Concomitant]
     Indication: CROHN^S DISEASE
  3. PROPRANOLOL [Concomitant]
     Indication: MIGRAINE PROPHYLAXIS
  4. AMITRIPTYLINE [Concomitant]
     Indication: MIGRAINE PROPHYLAXIS
     Dosage: 20MG DAILY
  5. SIMVASTATIN [Concomitant]
     Indication: BLOOD CHOLESTEROL INCREASED
     Dosage: 20MG DAILY
  6. LEVOTHYROXINE [Concomitant]
     Indication: THYROID FUNCTION TEST ABNORMAL
     Dosage: 75MCG DAILY
  7. OMEPRAZOLE [Concomitant]
     Indication: GASTRIC DISORDER
     Dosage: 20MG DAILY
  8. D3 [Concomitant]
     Indication: VITAMIN D DECREASED
     Dosage: 5000 DOSAGE FORMS
  9. PROBIOTICS [Concomitant]
     Indication: VITAMIN SUPPLEMENTATION
     Dosage: DAILY
  10. FISH OIL [Concomitant]
     Indication: VITAMIN SUPPLEMENTATION
     Dosage: 4 DAILY
  11. FOOD ENZYMES [Concomitant]
     Indication: VITAMIN SUPPLEMENTATION
  12. CHROMIUM PICOLINATE [Concomitant]
     Indication: VITAMIN SUPPLEMENTATION
  13. CELEXA [Concomitant]
     Indication: DEPRESSION
  14. CALCIUM [Concomitant]
     Indication: SUPPLEMENTATION THERAPY

REACTIONS (6)
  - Fatigue [Not Recovered/Not Resolved]
  - Hyperhidrosis [Not Recovered/Not Resolved]
  - Pain [Not Recovered/Not Resolved]
  - Myalgia [Not Recovered/Not Resolved]
  - Arthralgia [Not Recovered/Not Resolved]
  - Night sweats [Not Recovered/Not Resolved]
